FAERS Safety Report 9882969 (Version 1)
Quarter: 2014Q1

REPORT INFORMATION
  Report Type: Spontaneous
  Country: IT (occurrence: None)
  Receive Date: 20140204
  Receipt Date: 20140204
  Transmission Date: 20141002
  Serious: Yes (Hospitalization)
  Sender: FDA-Public Use
  Company Number: FK201400342

PATIENT
  Age: 35 Year
  Sex: Male

DRUGS (10)
  1. CISPLATIN [Suspect]
     Indication: SEMINOMA
  2. ETOPOSIDE [Suspect]
     Indication: SEMINOMA
  3. BLEOMYCIN [Suspect]
     Indication: SEMINOMA
  4. EMTRICITABINE\TENOFOVIR [Suspect]
     Indication: HIV INFECTION
     Dates: start: 201203
  5. DARUNAVIR [Suspect]
     Indication: HIV INFECTION
     Dates: start: 201203
  6. RITONAVIR [Suspect]
     Indication: HIV INFECTION
     Dates: start: 201203
  7. LOW-MOLECULAR WEIGHT HEPARIN (HEPARIN) [Concomitant]
  8. BETAMETHASONE W/GENTAMICIN (DIPROGENT/00541301/) [Concomitant]
  9. VALACICLOVIR (VALACICLOVIR) [Concomitant]
  10. CETIRIZINE ( CETIRIZINE) [Concomitant]

REACTIONS (11)
  - Acute generalised exanthematous pustulosis [None]
  - Arthralgia [None]
  - Herpes simplex [None]
  - Oropharyngeal pain [None]
  - Febrile neutropenia [None]
  - Thrombosis in device [None]
  - Joint swelling [None]
  - Joint warmth [None]
  - Coxsackie virus test positive [None]
  - Streptococcus test positive [None]
  - Immune reconstitution inflammatory syndrome [None]
